FAERS Safety Report 8244900-3 (Version None)
Quarter: 2012Q1

REPORT INFORMATION
  Report Type: 
  Country: None (occurrence: None)
  Receive Date: 20120329
  Receipt Date: 20110824
  Transmission Date: 20120608
  Serious: No
  Sender: FDA-Public Use
  Company Number: US-MYLANLABS-2011S1017912

PATIENT
  Age: 39 Year
  Sex: Male
  Weight: 104.33 kg

DRUGS (3)
  1. XANAX [Concomitant]
     Indication: ANXIETY
     Dates: start: 20080101
  2. FENTANYL-100 [Suspect]
     Indication: BACK PAIN
     Dosage: CHANGES Q. 72 HOURS
     Route: 062
     Dates: start: 20110201
  3. NEURONTIN [Concomitant]
     Indication: NEURALGIA

REACTIONS (2)
  - APPLICATION SITE BURN [None]
  - APPLICATION SITE ERYTHEMA [None]
